FAERS Safety Report 25967133 (Version 3)
Quarter: 2025Q4

REPORT INFORMATION
  Report Type: Report from Study
  Country: US (occurrence: US)
  Receive Date: 20251028
  Receipt Date: 20251208
  Transmission Date: 20260118
  Serious: Yes (Other)
  Sender: ALEXION PHARMACEUTICALS
  Company Number: US-AstraZeneca-CH-00978030A

PATIENT

DRUGS (1)
  1. ULTOMIRIS [Suspect]
     Active Substance: RAVULIZUMAB-CWVZ
     Indication: Myasthenia gravis
     Dosage: UNK
     Route: 065

REACTIONS (9)
  - Fall [Unknown]
  - Head injury [Unknown]
  - Walking aid user [Unknown]
  - Arthralgia [Unknown]
  - Balance disorder [Unknown]
  - Arthralgia [Unknown]
  - Aneurysm [Unknown]
  - Hiccups [Unknown]
  - Asthenia [Unknown]
